FAERS Safety Report 7339310-7 (Version None)
Quarter: 2011Q1

REPORT INFORMATION
  Report Type: 
  Country: None (occurrence: None)
  Receive Date: 20110308
  Receipt Date: 20110227
  Transmission Date: 20110831
  Serious: Yes (Other)
  Sender: FDA-Public Use
  Company Number: FR-BAXTER-2011BH004798

PATIENT
  Age: 24 Year
  Sex: Male
  Weight: 63 kg

DRUGS (9)
  1. MAGNESIUM SULFATE [Concomitant]
     Indication: ASTHMA
     Route: 042
  2. MIDAZOLAM [Concomitant]
     Indication: SEDATION
     Route: 042
  3. FORANE [Suspect]
     Indication: OFF LABEL USE
     Route: 055
  4. FENTANYL [Concomitant]
     Indication: SEDATION
     Route: 042
  5. CISATRACURIUM [Concomitant]
     Indication: PRODUCT USED FOR UNKNOWN INDICATION
     Route: 042
  6. FORANE [Suspect]
     Indication: ASTHMA
     Route: 055
  7. ADRENALIN [Concomitant]
     Indication: ASTHMA
     Route: 065
  8. CORTICOSTEROIDS [Concomitant]
     Indication: ASTHMA
     Route: 042
  9. KETAMINE HCL [Concomitant]
     Indication: SEDATION
     Route: 065

REACTIONS (2)
  - HYPERCAPNIA [None]
  - INTRACRANIAL PRESSURE INCREASED [None]
